FAERS Safety Report 4963543-8 (Version None)
Quarter: 2006Q1

REPORT INFORMATION
  Report Type: 
  Country: None (occurrence: None)
  Receive Date: 20060201
  Receipt Date: 20051114
  Transmission Date: 20060701
  Serious: No
  Sender: FDA-Public Use
  Company Number: 2005PV004722

PATIENT
  Age: 54 Year
  Sex: Female

DRUGS (5)
  1. BYETTA [Suspect]
     Indication: DIABETES MELLITUS NON-INSULIN-DEPENDENT
     Dosage: 5 MCG;BID;
     Dates: start: 20051104
  2. GLUCOTROL [Concomitant]
  3. HUMULIN N [Concomitant]
  4. HUMULIN 70/30 [Concomitant]
  5. BENTYL [Concomitant]

REACTIONS (1)
  - ABDOMINAL PAIN UPPER [None]
